FAERS Safety Report 12950811 (Version 1)
Quarter: 2016Q4

REPORT INFORMATION
  Report Type: Report from Study
  Country: US (occurrence: US)
  Receive Date: 20161116
  Receipt Date: 20161116
  Transmission Date: 20170207
  Serious: Yes (Other)
  Sender: FDA-Public Use
  Company Number: US-AMGEN-USASL2016158344

PATIENT
  Age: 69 Year
  Sex: Male

DRUGS (1)
  1. ENBREL [Suspect]
     Active Substance: ETANERCEPT
     Indication: PSORIASIS
     Dosage: UNK UNK, QWK
     Route: 065
     Dates: start: 201608

REACTIONS (8)
  - Ill-defined disorder [Unknown]
  - Sleep disorder due to a general medical condition [Unknown]
  - Spleen disorder [Unknown]
  - Therapy non-responder [Unknown]
  - Lymphadenopathy [Not Recovered/Not Resolved]
  - White blood cell count increased [Unknown]
  - Psoriasis [Unknown]
  - Intentional product misuse [Unknown]

NARRATIVE: CASE EVENT DATE: 2016
